FAERS Safety Report 5456644-1 (Version None)
Quarter: 2007Q3

REPORT INFORMATION
  Report Type: 
  Country: None (occurrence: None)
  Receive Date: 20070918
  Receipt Date: 20070319
  Transmission Date: 20080115
  Serious: Yes (Hospitalization)
  Sender: FDA-Public Use
  Company Number: US-ASTRAZENECA-2006UW25549

PATIENT
  Age: 84 Year
  Sex: Male
  Weight: 81.6 kg

DRUGS (9)
  1. SEROQUEL [Suspect]
     Indication: RESTLESSNESS
     Route: 048
     Dates: start: 20061002
  2. SEROQUEL [Suspect]
     Indication: INSOMNIA
     Route: 048
     Dates: start: 20061002
  3. SEROQUEL [Suspect]
     Route: 048
     Dates: start: 20061001
  4. SEROQUEL [Suspect]
     Route: 048
     Dates: start: 20061001
  5. ECELON [Concomitant]
  6. NAMENDA [Concomitant]
  7. EFFEXOR XR [Concomitant]
  8. LASIX [Concomitant]
  9. POTASSIUM CHLORIDE [Concomitant]

REACTIONS (3)
  - GAIT DISTURBANCE [None]
  - MOBILITY DECREASED [None]
  - PNEUMONIA [None]
